FAERS Safety Report 13181258 (Version 1)
Quarter: 2017Q1

REPORT INFORMATION
  Report Type: Spontaneous
  Country: US (occurrence: US)
  Receive Date: 20170202
  Receipt Date: 20170202
  Transmission Date: 20170428
  Serious: No
  Sender: FDA-Public Use
  Company Number: US-SMITH AND NEPHEW, INC-2016SMT01079

PATIENT
  Age: 72 Year
  Sex: Male
  Weight: 143.76 kg

DRUGS (36)
  1. ALLOPURINOL. [Concomitant]
     Active Substance: ALLOPURINOL
  2. NOVOLOG [Concomitant]
     Active Substance: INSULIN ASPART
  3. LUMIGAN [Concomitant]
     Active Substance: BIMATOPROST
  4. ALPHAGAN P [Concomitant]
     Active Substance: BRIMONIDINE TARTRATE
  5. DOCUSATE [Concomitant]
     Active Substance: DOCUSATE
  6. IRON [Concomitant]
     Active Substance: IRON
  7. BENADRYL [Concomitant]
     Active Substance: DIPHENHYDRAMINE HYDROCHLORIDE
     Dosage: UNK, AS NEEDED
  8. NEXIUM [Concomitant]
     Active Substance: ESOMEPRAZOLE MAGNESIUM
     Dosage: UNK, AS NEEDED
  9. FLONASE [Concomitant]
     Active Substance: FLUTICASONE PROPIONATE
  10. VITAMIN D3 [Concomitant]
     Active Substance: CHOLECALCIFEROL
  11. RUTIN [Concomitant]
     Active Substance: RUTIN
  12. MEN 50+ MULTIVITAMIN [Concomitant]
  13. VITAMIN B12 [Concomitant]
     Active Substance: CYANOCOBALAMIN
  14. FUROSEMIDE. [Concomitant]
     Active Substance: FUROSEMIDE
  15. ELOCON [Concomitant]
     Active Substance: MOMETASONE FUROATE
  16. FLOMAX [Concomitant]
     Active Substance: TAMSULOSIN HYDROCHLORIDE
  17. PROBIOTIC [Concomitant]
     Active Substance: PROBIOTICS NOS
  18. VITAMIN E [Concomitant]
     Active Substance: .ALPHA.-TOCOPHEROL
  19. SALINE NASAL SPRAY [Concomitant]
     Active Substance: SODIUM CHLORIDE
     Dosage: UNK, AS NEEDED
  20. LEVEMIR [Concomitant]
     Active Substance: INSULIN DETEMIR
  21. VALSARTAN. [Concomitant]
     Active Substance: VALSARTAN
  22. GUAIFENESIN. [Concomitant]
     Active Substance: GUAIFENESIN
     Dosage: UNK, AS NEEDED
  23. SYSTANE BALANCE [Concomitant]
     Active Substance: PROPYLENE GLYCOL
     Dosage: UNK, AS NEEDED
  24. TRAMADOL. [Concomitant]
     Active Substance: TRAMADOL
  25. SUPER B COMPLEX [Concomitant]
     Active Substance: CYANOCOBALAMIN\DEXPANTHENOL\NIACINAMIDE\PYRIDOXINE HYDROCHLORIDE\RIBOFLAVIN 5^-PHOSPHATE SODIUM\THIAMINE HYDROCHLORIDE\VITAMIN B COMPLEX
  26. FOLIC ACID. [Concomitant]
     Active Substance: FOLIC ACID
  27. OMEGA-3 FISH OIL [Concomitant]
     Active Substance: FISH OIL\OMEGA-3 FATTY ACIDS
  28. REGRANEX [Suspect]
     Active Substance: BECAPLERMIN
     Indication: WOUND
     Dosage: UNK UNK, 1X/DAY
     Route: 061
     Dates: start: 20161201
  29. METHOTREXATE. [Concomitant]
     Active Substance: METHOTREXATE
     Dosage: UNK, 1X/WEEK
  30. ASPIRIN. [Concomitant]
     Active Substance: ASPIRIN
  31. CINNAMON WITH CHROMIUM [Concomitant]
  32. CRANBERRY. [Concomitant]
     Active Substance: CRANBERRY
  33. VITAMIN C [Concomitant]
     Active Substance: ASCORBIC ACID
  34. GARLIC. [Concomitant]
     Active Substance: GARLIC
  35. ALLEGRA [Concomitant]
     Active Substance: FEXOFENADINE HYDROCHLORIDE
     Dosage: UNK, AS NEEDED
  36. TYLENOL ARTHRITIS PAIN [Concomitant]
     Active Substance: ACETAMINOPHEN
     Dosage: UNK, AS NEEDED

REACTIONS (1)
  - Wound haemorrhage [Recovered/Resolved]

NARRATIVE: CASE EVENT DATE: 20161202
